FAERS Safety Report 7315264-4 (Version None)
Quarter: 2011Q1

REPORT INFORMATION
  Report Type: 
  Country: None (occurrence: None)
  Receive Date: 20110225
  Receipt Date: 20110217
  Transmission Date: 20110831
  Serious: Yes (Hospitalization)
  Sender: FDA-Public Use
  Company Number: NL-ROCHE-760497

PATIENT
  Sex: Female

DRUGS (7)
  1. ONDANSETRON [Concomitant]
     Dates: start: 20100420
  2. PANTOZOL [Concomitant]
     Dates: start: 20100226
  3. CARBOPLATIN [Suspect]
     Dosage: FREQUENCY: 14X, DATE OF LAST DOSE PRIOR TO SAE: 01 JUNE 2010
     Route: 042
     Dates: start: 20100204
  4. TRASTUZUMAB [Suspect]
     Dosage: FREQUENCY: 14X, DATE OF LAST DOSE PRIOR TO SAE: 01 JUNE 2010, MAINTAINENCE DOSE
     Route: 042
     Dates: start: 20100225
  5. PACLITAXEL [Suspect]
     Dosage: FREQUENCY: 14X, DATE OF LAST DOSE PRIOR TO SAE: 01 JUNE 2010
     Route: 042
     Dates: start: 20100204
  6. LORAZEPAM [Concomitant]
     Dosage: DAILY DOSE: PRN
     Dates: start: 20100312
  7. TRASTUZUMAB [Suspect]
     Dosage: LOADING DOSE
     Route: 042
     Dates: start: 20100204

REACTIONS (3)
  - MALAISE [None]
  - VOMITING [None]
  - NAUSEA [None]
